APPROVED DRUG PRODUCT: LABETALOL HYDROCHLORIDE
Active Ingredient: LABETALOL HYDROCHLORIDE
Strength: 20MG/4ML (5MG/ML)
Dosage Form/Route: SOLUTION;INTRAVENOUS
Application: N213330 | Product #006
Applicant: HIKMA PHARMACEUTICALS USA INC
Approved: Aug 19, 2024 | RLD: Yes | RS: Yes | Type: RX